FAERS Safety Report 18308375 (Version 2)
Quarter: 2021Q1

REPORT INFORMATION
  Report Type: Spontaneous
  Country: US (occurrence: US)
  Receive Date: 20200924
  Receipt Date: 20210203
  Transmission Date: 20210419
  Serious: No
  Sender: FDA-Public Use
  Company Number: US-TEIKOKU PHARMA USA-TPU2020-00779

PATIENT
  Sex: Female

DRUGS (5)
  1. LIDODERM [Suspect]
     Active Substance: LIDOCAINE
     Indication: NEUROPATHY PERIPHERAL
     Dates: start: 1995
  2. DAILY MAINTENANCE DRUG FOR HIGH BLOOD PRESSURE [Concomitant]
     Indication: HYPERTENSION
  3. LIDODERM [Suspect]
     Active Substance: LIDOCAINE
     Indication: NEUROPATHY PERIPHERAL
  4. LIDOCAINE PATCH [Suspect]
     Active Substance: LIDOCAINE
     Indication: NEUROPATHY PERIPHERAL
  5. LIDOCAINE PATCH [Suspect]
     Active Substance: LIDOCAINE
     Indication: SPINAL STENOSIS

REACTIONS (1)
  - Hypertension [Unknown]
